FAERS Safety Report 20737524 (Version 1)
Quarter: 2022Q2

REPORT INFORMATION
  Report Type: Report from Study
  Country: US (occurrence: US)
  Receive Date: 20220422
  Receipt Date: 20220422
  Transmission Date: 20220721
  Serious: Yes (Other)
  Sender: FDA-Public Use
  Company Number: US-JNJFOC-20220339787

PATIENT
  Age: 75 Year
  Sex: Male
  Weight: 97.610 kg

DRUGS (4)
  1. SELEXIPAG [Suspect]
     Active Substance: SELEXIPAG
     Indication: Pulmonary arterial hypertension
     Route: 048
     Dates: start: 202112
  2. SELEXIPAG [Suspect]
     Active Substance: SELEXIPAG
     Indication: Portopulmonary hypertension
  3. SILDENAFIL [Concomitant]
     Active Substance: SILDENAFIL
     Indication: Portopulmonary hypertension
     Dates: start: 202007
  4. OPSUMIT [Concomitant]
     Active Substance: MACITENTAN
     Indication: Portopulmonary hypertension
     Dates: start: 201802

REACTIONS (6)
  - Hypoxia [Recovered/Resolved]
  - Drug intolerance [Unknown]
  - Myalgia [Recovered/Resolved]
  - Abdominal discomfort [Recovered/Resolved]
  - Headache [Recovered/Resolved]
  - Dyspnoea [Recovered/Resolved]

NARRATIVE: CASE EVENT DATE: 20211215
